FAERS Safety Report 4776399-3 (Version None)
Quarter: 2005Q3

REPORT INFORMATION
  Report Type: 
  Country: None (occurrence: None)
  Receive Date: 20050921
  Receipt Date: 20050817
  Transmission Date: 20060218
  Serious: Yes (Hospitalization)
  Sender: FDA-Public Use
  Company Number: 2005RR-00731

PATIENT
  Age: 72 Year
  Sex: Female

DRUGS (1)
  1. CEFACLOR [Suspect]
     Indication: SKIN ULCER
     Dosage: ORAL
     Dates: start: 20020108, end: 20020112

REACTIONS (6)
  - ACUTE GENERALISED EXANTHEMATOUS PUSTULOSIS [None]
  - DRUG HYPERSENSITIVITY [None]
  - LEUKOCYTOSIS [None]
  - NEUTROPHIL PERCENTAGE INCREASED [None]
  - NO REACTION ON PREVIOUS EXPOSURE TO DRUG [None]
  - TYPE III IMMUNE COMPLEX MEDIATED REACTION [None]
